FAERS Safety Report 25741929 (Version 1)
Quarter: 2025Q3

REPORT INFORMATION
  Report Type: Spontaneous
  Country: CN (occurrence: CN)
  Receive Date: 20250829
  Receipt Date: 20250829
  Transmission Date: 20251021
  Serious: Yes (Other)
  Sender: CSL BEHRING
  Company Number: CN-BEH-2025216623

PATIENT
  Age: 80 Year
  Sex: Female
  Weight: 35 kg

DRUGS (1)
  1. ALBURX [Suspect]
     Active Substance: ALBUMIN HUMAN
     Indication: Blood albumin abnormal
     Dosage: 10 G, OD
     Route: 041
     Dates: start: 20250721, end: 20250722

REACTIONS (1)
  - Rash [Recovering/Resolving]

NARRATIVE: CASE EVENT DATE: 20250723
